FAERS Safety Report 13568439 (Version 2)
Quarter: 2021Q1

REPORT INFORMATION
  Report Type: Spontaneous
  Country: CA (occurrence: CA)
  Receive Date: 20170522
  Receipt Date: 20210122
  Transmission Date: 20210419
  Serious: Yes (Death, Other)
  Sender: FDA-Public Use
  Company Number: CA-PFIZER INC-2017217014

PATIENT
  Age: 22 Year
  Sex: Male
  Weight: 33.11 kg

DRUGS (10)
  1. TRACLEER [Concomitant]
     Active Substance: BOSENTAN
     Dosage: 62 MG (HALF A TABLET), 2X/DAY (NORMING AND AT SUPPER)
  2. REVATIO [Suspect]
     Active Substance: SILDENAFIL CITRATE
     Indication: PULMONARY ARTERIAL HYPERTENSION
     Dosage: UNK
     Route: 048
  3. SERTRALINE [Concomitant]
     Active Substance: SERTRALINE HYDROCHLORIDE
     Dosage: 25 MG, DAILY AT NOON
  4. FUROSEMIDE. [Concomitant]
     Active Substance: FUROSEMIDE
     Dosage: 20 MG, 2X/DAY (MORNING AND AT SUPPER)
  5. FERROUS FUMARATE [Concomitant]
     Active Substance: FERROUS FUMARATE
     Dosage: 200 MG, DAILY AT NOON
  6. DIGOXIN. [Concomitant]
     Active Substance: DIGOXIN
     Dosage: 0.125, DAILY
  7. COUMADIN [Concomitant]
     Active Substance: WARFARIN SODIUM
     Dosage: 6MG/7MG AS PER INR, DAILY AT SUPPER
  8. SPIRONOLACTONE. [Concomitant]
     Active Substance: SPIRONOLACTONE
     Dosage: 25 MG 3/4 TABLET, 2X/DAY MORNING AND AT NIGHT
  9. CARIPUL [Concomitant]
     Active Substance: EPOPROSTENOL
     Dosage: UNK
  10. OXYGEN. [Concomitant]
     Active Substance: OXYGEN
     Dosage: CONTINOUS 2.5 L AT NIGHT, HIGHER DURING THE

REACTIONS (1)
  - Death [Fatal]

NARRATIVE: CASE EVENT DATE: 20170513
